FAERS Safety Report 7070345-8 (Version None)
Quarter: 2010Q4

REPORT INFORMATION
  Report Type: 
  Country: None (occurrence: None)
  Receive Date: 20101028
  Receipt Date: 20101021
  Transmission Date: 20110411
  Serious: No
  Sender: FDA-Public Use
  Company Number: US-WYE-H18281010

PATIENT
  Age: 58 Year
  Sex: Male
  Weight: 104.42 kg

DRUGS (3)
  1. ADVIL [Suspect]
     Indication: PAIN
     Dosage: 1-2 LIQUI-GELS AS NEEDED
     Route: 048
     Dates: start: 20101017, end: 20101019
  2. HYDROCHLOROTHIAZIDE [Concomitant]
  3. LISINOPRIL [Concomitant]

REACTIONS (2)
  - RASH PAPULAR [None]
  - URTICARIA [None]
